FAERS Safety Report 7940230-5 (Version None)
Quarter: 2011Q4

REPORT INFORMATION
  Report Type: 
  Country: None (occurrence: None)
  Receive Date: 20111126
  Receipt Date: 20110919
  Transmission Date: 20120403
  Serious: No
  Sender: FDA-Public Use
  Company Number: US-BAYER-2011-091266

PATIENT
  Age: 23 Year
  Sex: Female
  Weight: 91 kg

DRUGS (2)
  1. UNKNOWN [Concomitant]
     Dosage: UNK UNK, QD
  2. ALEVE (CAPLET) [Suspect]
     Indication: DYSMENORRHOEA
     Route: 048

REACTIONS (1)
  - DYSMENORRHOEA [None]
